FAERS Safety Report 17574977 (Version 4)
Quarter: 2021Q1

REPORT INFORMATION
  Report Type: Spontaneous
  Country: US (occurrence: US)
  Receive Date: 20200324
  Receipt Date: 20210304
  Transmission Date: 20210419
  Serious: Yes (Other)
  Sender: FDA-Public Use
  Company Number: US-TEVA-2020-US-1209806

PATIENT
  Age: 75 Year
  Sex: Male
  Weight: 85.91 kg

DRUGS (19)
  1. VALSARTAN ACTAVIS [Suspect]
     Active Substance: VALSARTAN
     Indication: HYPERTENSION
     Route: 065
     Dates: start: 20151019, end: 20160119
  2. ASPIRIN. [Concomitant]
     Active Substance: ASPIRIN
     Indication: ANTICOAGULANT THERAPY
     Route: 048
     Dates: start: 2000
  3. PANTOPRAZOLE SODIUM. [Concomitant]
     Active Substance: PANTOPRAZOLE SODIUM
     Indication: GASTROOESOPHAGEAL REFLUX DISEASE
     Route: 065
     Dates: start: 2000
  4. VITAMIN D [Concomitant]
     Active Substance: VITAMIN D NOS
     Indication: GENERAL PHYSICAL HEALTH DETERIORATION
     Dates: start: 2015
  5. METRONIDAZOLE. [Concomitant]
     Active Substance: METRONIDAZOLE
     Dosage: APPLY THIN FILM TO AFFECTED AREA AM AND PM
  6. VALSARTAN SOLCO HEALTHCARE [Suspect]
     Active Substance: VALSARTAN
     Indication: HYPERTENSION
     Route: 065
     Dates: start: 20160116, end: 20180922
  7. VALSARTAN. [Suspect]
     Active Substance: VALSARTAN
     Indication: HYPERTENSION
     Route: 048
     Dates: start: 2014, end: 2018
  8. VALSARTAN TEVA [Suspect]
     Active Substance: VALSARTAN
     Indication: HYPERTENSION
     Route: 065
     Dates: start: 20150716, end: 20151016
  9. DIOVAN [Suspect]
     Active Substance: VALSARTAN
     Indication: HYPERTENSION
     Route: 048
     Dates: start: 20090804, end: 2014
  10. DIOVAN [Suspect]
     Active Substance: VALSARTAN
     Route: 048
  11. DIOVAN [Suspect]
     Active Substance: VALSARTAN
     Route: 048
  12. FINASTERIDE. [Concomitant]
     Active Substance: FINASTERIDE
     Indication: ANTICOAGULANT THERAPY
  13. VITAMIN B COMPLEX [Concomitant]
     Active Substance: CYANOCOBALAMIN\DEXPANTHENOL\NIACINAMIDE\PYRIDOXINE HYDROCHLORIDE\RIBOFLAVIN 5^-PHOSPHATE SODIUM\THIAMINE HYDROCHLORIDE\VITAMIN B COMPLEX
     Indication: GENERAL PHYSICAL HEALTH DETERIORATION
     Dates: start: 2015
  14. VALSARTAN/HYDROCHLORTHIAZIDE [Suspect]
     Active Substance: HYDROCHLOROTHIAZIDE\VALSARTAN
     Indication: HYPERTENSION
     Route: 065
  15. SIMVASTATIN. [Concomitant]
     Active Substance: SIMVASTATIN
     Indication: BLOOD TRIGLYCERIDES INCREASED
     Dosage: AT BED TIME
     Route: 048
     Dates: start: 2000
  16. TAMSULOSIN HCL [Concomitant]
     Active Substance: TAMSULOSIN HYDROCHLORIDE
     Indication: PROSTATOMEGALY
     Route: 048
  17. FINASTERIDE. [Concomitant]
     Active Substance: FINASTERIDE
     Indication: PROSTATOMEGALY
     Route: 048
     Dates: start: 2000
  18. TURMERIC [Concomitant]
     Active Substance: HERBALS\TURMERIC
     Indication: GENERAL PHYSICAL HEALTH DETERIORATION
  19. PREDNISONE. [Concomitant]
     Active Substance: PREDNISONE
     Dosage: 4 PILLS FOR 4 DAYS, 3 PILLS FOR 4 DAYS, 2 PILLS FOR 4 DAYS, 1 PILL FOR 4 DAYS

REACTIONS (4)
  - Frequent bowel movements [Unknown]
  - Colon cancer [Unknown]
  - Haematochezia [Unknown]
  - Rectal adenocarcinoma [Recovering/Resolving]
